FAERS Safety Report 9778291 (Version 1)
Quarter: 2013Q4

REPORT INFORMATION
  Report Type: Spontaneous
  Country: US (occurrence: None)
  Receive Date: 20131220
  Receipt Date: 20131220
  Transmission Date: 20140711
  Serious: Yes (Other)
  Sender: FDA-Public Use
  Company Number: None

PATIENT
  Age: 54 Year
  Sex: Female
  Weight: 51.71 kg

DRUGS (5)
  1. BOTOX [Suspect]
     Dates: start: 20130321, end: 20130321
  2. SYN-THYROID [Concomitant]
  3. MULTI-VITAMINS [Concomitant]
  4. C [Concomitant]
  5. CALCIUM [Concomitant]

REACTIONS (3)
  - Swelling face [None]
  - Eye swelling [None]
  - Contusion [None]
